FAERS Safety Report 4396150-9 (Version None)
Quarter: 2004Q3

REPORT INFORMATION
  Report Type: 
  Country: None (occurrence: None)
  Receive Date: 20040706
  Receipt Date: 20040623
  Transmission Date: 20050211
  Serious: Yes (Hospitalization)
  Sender: FDA-Public Use
  Company Number: B0336573A

PATIENT
  Age: 51 Year
  Sex: Female

DRUGS (2)
  1. VENTOLIN [Suspect]
     Indication: ASTHMA
     Dosage: SEE DOSAGE TEXT/ INHALED
     Route: 055
  2. IPRATROPIUMBR+TERBUTALINE AEROSOL SPRAY (IPRATROPIUMBR+TERBUTALINE) [Suspect]
     Indication: ASTHMA
     Dosage: SEE DOSAGE TEXT/ INHALED A
     Route: 055

REACTIONS (5)
  - BLOOD GLUCOSE INCREASED [None]
  - DRUG INEFFECTIVE [None]
  - METABOLIC ACIDOSIS [None]
  - RESPIRATORY ACIDOSIS [None]
  - TACHYPNOEA [None]
